FAERS Safety Report 13369268 (Version 1)
Quarter: 2017Q1

REPORT INFORMATION
  Report Type: Report from Study
  Country: BR (occurrence: BR)
  Receive Date: 20170324
  Receipt Date: 20170324
  Transmission Date: 20170429
  Serious: Yes (Other)
  Sender: FDA-Public Use
  Company Number: PHHY2017BR044785

PATIENT
  Age: 78 Year
  Sex: Female
  Weight: 58 kg

DRUGS (2)
  1. ACLASTA [Suspect]
     Active Substance: ZOLEDRONIC ACID
     Dosage: UNK
     Route: 041
     Dates: start: 2013
  2. ACLASTA [Suspect]
     Active Substance: ZOLEDRONIC ACID
     Indication: OSTEOPOROSIS
     Dosage: 5 MG, Q12MO
     Route: 042

REACTIONS (6)
  - Paralysis [Unknown]
  - Bone disorder [Unknown]
  - Hand deformity [Unknown]
  - Fall [Unknown]
  - Wrist fracture [Recovering/Resolving]
  - Hand fracture [Unknown]

NARRATIVE: CASE EVENT DATE: 20161122
